FAERS Safety Report 5669633-9 (Version None)
Quarter: 2008Q1

REPORT INFORMATION
  Report Type: 
  Country: None (occurrence: None)
  Receive Date: 20080312
  Receipt Date: 20080312
  Transmission Date: 20080703
  Serious: No
  Sender: FDA-Public Use
  Company Number: None

PATIENT
  Age: 46 Year
  Sex: Female
  Weight: 64.4108 kg

DRUGS (1)
  1. HYDROCODONE BITARTRATE + IBUPROFEN [Suspect]
     Indication: FIBROMYALGIA
     Dosage: 7.5/200 Q6HR PRN PO
     Route: 048
     Dates: start: 20070702, end: 20070802

REACTIONS (4)
  - ANXIETY [None]
  - FEELING JITTERY [None]
  - INSOMNIA [None]
  - PALPITATIONS [None]
